FAERS Safety Report 15415954 (Version 1)
Quarter: 2018Q3

REPORT INFORMATION
  Report Type: Report from Study
  Country: US (occurrence: US)
  Receive Date: 20180923
  Receipt Date: 20180923
  Transmission Date: 20181010
  Serious: Yes (Other)
  Sender: FDA-Public Use
  Company Number: US-UCBSA-2018040018

PATIENT
  Sex: Female

DRUGS (1)
  1. LEVETIRACETAM. [Suspect]
     Active Substance: LEVETIRACETAM
     Indication: PRODUCT USED FOR UNKNOWN INDICATION
     Dosage: 4000 MG
     Dates: start: 2007

REACTIONS (6)
  - Weight increased [Unknown]
  - Overdose [Unknown]
  - Seizure [Unknown]
  - Off label use [Unknown]
  - Migraine [Unknown]
  - Drug ineffective [Unknown]
